FAERS Safety Report 8161586-7 (Version None)
Quarter: 2012Q1

REPORT INFORMATION
  Report Type: 
  Country: None (occurrence: None)
  Receive Date: 20120224
  Receipt Date: 20120215
  Transmission Date: 20120608
  Serious: Yes (Hospitalization)
  Sender: FDA-Public Use
  Company Number: PHHY2011DE63136

PATIENT
  Sex: Female

DRUGS (1)
  1. EXTAVIA [Suspect]
     Indication: MULTIPLE SCLEROSIS
     Dosage: 250 UG, QOD
     Route: 058
     Dates: start: 20110712, end: 20120101

REACTIONS (5)
  - BACK PAIN [None]
  - PARAESTHESIA [None]
  - INTERVERTEBRAL DISC PROTRUSION [None]
  - MULTIPLE MYELOMA [None]
  - PARAPROTEINAEMIA [None]
